FAERS Safety Report 16211689 (Version 2)
Quarter: 2019Q2

REPORT INFORMATION
  Report Type: Spontaneous
  Country: US (occurrence: US)
  Receive Date: 20190418
  Receipt Date: 20190625
  Transmission Date: 20190711
  Serious: Yes (Other)
  Sender: FDA-Public Use
  Company Number: US-ENDO PHARMACEUTICALS INC-2019-103982

PATIENT
  Age: 59 Year
  Sex: Male

DRUGS (4)
  1. XIAFLEX [Suspect]
     Active Substance: COLLAGENASE CLOSTRIDIUM HISTOLYTICUM
     Dosage: 0.9 MG, UNKNOWN (CYCLE 3, INJECTION 1+ 2)
     Route: 026
  2. XIAFLEX [Suspect]
     Active Substance: COLLAGENASE CLOSTRIDIUM HISTOLYTICUM
     Dosage: 0.9 MG, UNKNOWN (CYCLE 1, INJECTION 1+ 2)
     Route: 026
     Dates: start: 20160602
  3. XIAFLEX [Suspect]
     Active Substance: COLLAGENASE CLOSTRIDIUM HISTOLYTICUM
     Indication: PEYRONIE^S DISEASE
     Dosage: 0.9 MG, UNKNOWN (CYCLE 4, INJECTION 1+2)
     Route: 026
     Dates: end: 20170807
  4. XIAFLEX [Suspect]
     Active Substance: COLLAGENASE CLOSTRIDIUM HISTOLYTICUM
     Dosage: 0.9 MG, UNKNOWN (CYCLE 2, INJECTION 1 +2)
     Route: 026

REACTIONS (2)
  - Penile haemorrhage [Unknown]
  - Fracture of penis [Recovered/Resolved]

NARRATIVE: CASE EVENT DATE: 20160714
